FAERS Safety Report 14378972 (Version 1)
Quarter: 2018Q1

REPORT INFORMATION
  Report Type: Spontaneous
  Country: DE (occurrence: DE)
  Receive Date: 20180112
  Receipt Date: 20180112
  Transmission Date: 20180509
  Serious: Yes (Hospitalization)
  Sender: FDA-Public Use
  Company Number: DE-SUN PHARMACEUTICAL INDUSTRIES LTD-2018R1-159775

PATIENT
  Age: 28 Year
  Sex: Female

DRUGS (20)
  1. AKINETON [Concomitant]
     Active Substance: BIPERIDEN HYDROCHLORIDE
     Indication: PRODUCT USED FOR UNKNOWN INDICATION
     Dosage: 4 MG, DAILY
     Route: 065
     Dates: start: 20140711, end: 20140714
  2. AKINETON [Concomitant]
     Active Substance: BIPERIDEN HYDROCHLORIDE
     Dosage: UNK
     Route: 065
     Dates: start: 20140711, end: 20140714
  3. ABILIFY [Suspect]
     Active Substance: ARIPIPRAZOLE
     Indication: SCHIZOAFFECTIVE DISORDER
     Dosage: 10 MG, DAILY
     Route: 065
     Dates: start: 20140620
  4. FLUPHENAZINE DECANOATE. [Suspect]
     Active Substance: FLUPHENAZINE DECANOATE
     Dosage: 9 MG, QD
     Route: 065
     Dates: start: 20140728
  5. SOLIAN [Suspect]
     Active Substance: AMISULPRIDE
     Indication: SCHIZOAFFECTIVE DISORDER
     Dosage: 200 MG, DAILY
     Route: 048
     Dates: start: 20140626
  6. AKINETON [Concomitant]
     Active Substance: BIPERIDEN HYDROCHLORIDE
     Dosage: 6 MG, UNK
     Route: 065
     Dates: start: 20140715
  7. FLUPHENAZINE DECANOATE. [Suspect]
     Active Substance: FLUPHENAZINE DECANOATE
     Indication: SCHIZOAFFECTIVE DISORDER
     Dosage: 3 MG, QD
     Route: 065
     Dates: start: 20140708
  8. LYOGEN [Suspect]
     Active Substance: FLUPHENAZINE
     Dosage: 6 MG, DAILY
     Route: 065
     Dates: start: 20140709
  9. ABILIFY [Suspect]
     Active Substance: ARIPIPRAZOLE
     Dosage: 15 MG, DAILY
     Route: 065
     Dates: start: 20140621, end: 20140622
  10. SOLIAN [Suspect]
     Active Substance: AMISULPRIDE
     Dosage: UNK
     Route: 048
     Dates: start: 20140709
  11. ABILIFY [Suspect]
     Active Substance: ARIPIPRAZOLE
     Indication: SCHIZOAFFECTIVE DISORDER
     Dosage: UNK, QD
     Route: 065
     Dates: start: 20140629
  12. LYOGEN [Suspect]
     Active Substance: FLUPHENAZINE
     Indication: SCHIZOAFFECTIVE DISORDER
     Dosage: 3 MG, DAILY
     Route: 065
     Dates: start: 20140708
  13. SERTRALINE [Suspect]
     Active Substance: SERTRALINE HYDROCHLORIDE
     Dosage: UNK
     Route: 065
     Dates: start: 20140729
  14. ABILIFY [Suspect]
     Active Substance: ARIPIPRAZOLE
     Dosage: 5 MG, DAILY
     Route: 065
     Dates: start: 20140620, end: 20140620
  15. ABILIFY [Suspect]
     Active Substance: ARIPIPRAZOLE
     Dosage: 20 MG, DAILY
     Route: 065
     Dates: start: 20140623, end: 20140624
  16. LYOGEN [Suspect]
     Active Substance: FLUPHENAZINE
     Dosage: 6 MG, QD
     Route: 048
     Dates: start: 20140709, end: 20140727
  17. SERTRALINE [Suspect]
     Active Substance: SERTRALINE HYDROCHLORIDE
     Indication: SCHIZOAFFECTIVE DISORDER
     Dosage: 25 MG, DAILY
     Route: 065
     Dates: start: 20140710, end: 20140723
  18. ABILIFY [Suspect]
     Active Substance: ARIPIPRAZOLE
     Dosage: 30 MG, DAILY
     Route: 065
     Dates: start: 20140625, end: 20140626
  19. LYOGEN [Suspect]
     Active Substance: FLUPHENAZINE
     Dosage: 9 MG, DAILY
     Route: 065
     Dates: start: 20140728
  20. SOLIAN [Suspect]
     Active Substance: AMISULPRIDE
     Dosage: 600 MG, DAILY
     Route: 048
     Dates: start: 20140627, end: 20140707

REACTIONS (7)
  - Blood prolactin increased [Recovering/Resolving]
  - Blood prolactin increased [Recovering/Resolving]
  - Accommodation disorder [Recovered/Resolved]
  - Musculoskeletal stiffness [Recovered/Resolved]
  - Flatulence [Recovered/Resolved]
  - Constipation [Recovered/Resolved]
  - Underdose [Unknown]

NARRATIVE: CASE EVENT DATE: 20140612
